FAERS Safety Report 8375912-7 (Version None)
Quarter: 2012Q2

REPORT INFORMATION
  Report Type: 
  Country: None (occurrence: None)
  Receive Date: 20120522
  Receipt Date: 20120516
  Transmission Date: 20120825
  Serious: Yes (Other)
  Sender: FDA-Public Use
  Company Number: BR-SANOFI-AVENTIS-2012SA035153

PATIENT
  Age: 70 Year
  Sex: Male
  Weight: 74 kg

DRUGS (16)
  1. WARFARIN SODIUM [Concomitant]
     Dosage: 1 TABLET OR HALF TABLET PER DAYSTRENGTH:5MG
     Route: 048
     Dates: start: 20000101
  2. ZETIA [Concomitant]
     Route: 048
  3. OMEPRAZOLE [Concomitant]
     Indication: GASTROINTESTINAL DISORDER
     Route: 048
  4. CALCITRIOL [Concomitant]
     Indication: BONE DISORDER
     Dosage: STRENGTH:0.25MG
     Route: 048
  5. CARVEDILOL [Concomitant]
     Dosage: STRENGTH: 12.5MG
     Route: 048
  6. ALL OTHER THERAPEUTIC PRODUCTS [Concomitant]
     Indication: BONE DISORDER
     Dosage: STRENGTH:70MG
     Route: 048
  7. WARFARIN SODIUM [Concomitant]
     Dosage: DOSAGE: ACCORDING TO ORIENTATION OF COAGULATION GROUP
     Route: 048
  8. OS-CAL D [Concomitant]
     Indication: BONE DISORDER
     Route: 048
  9. LANTUS [Suspect]
     Indication: TYPE 2 DIABETES MELLITUS
     Route: 058
     Dates: start: 20120101
  10. ATORVASTATIN CALCIUM [Concomitant]
     Dosage: STRENGTH:40MG
     Route: 048
  11. CARVEDILOL [Concomitant]
     Dosage: STRENGTH: 25MG
     Route: 048
  12. NOVORAPID [Concomitant]
     Dosage: DOSAGE: ACCORDING TO CARBOHYDRATES COUNTING
     Route: 058
  13. SERTRALINE HYDROCHLORIDE [Concomitant]
     Indication: STRESS
     Dosage: STRENGTH:50MG
     Route: 048
  14. ALL OTHER THERAPEUTIC PRODUCTS [Concomitant]
     Route: 048
  15. DIGOXIN [Concomitant]
     Dosage: STRENGTH:0.25MG
     Route: 048
  16. HUMALOG [Concomitant]
     Dosage: DOSE: ACCORDING TO CARBOHYDRATES COUNTING
     Route: 058

REACTIONS (6)
  - COAGULATION TIME PROLONGED [None]
  - LACERATION [None]
  - VASCULAR RUPTURE [None]
  - FALL [None]
  - HAEMORRHAGE [None]
  - BALANCE DISORDER [None]
